FAERS Safety Report 6303675-5 (Version None)
Quarter: 2009Q3

REPORT INFORMATION
  Report Type: 
  Country: None (occurrence: None)
  Receive Date: 20090807
  Receipt Date: 20090807
  Transmission Date: 20100115
  Serious: Yes (Other)
  Sender: FDA-Public Use
  Company Number: None

PATIENT
  Age: 40 Year
  Sex: Female
  Weight: 102.0593 kg

DRUGS (2)
  1. SYNTHROID [Suspect]
     Indication: HYPOTHYROIDISM
     Dosage: ALL DAILY PO
     Route: 048
     Dates: start: 19940301, end: 20070901
  2. LEVOXYL [Suspect]
     Indication: ANTI-THYROID ANTIBODY POSITIVE
     Dosage: ALL DAILY PO
     Route: 048

REACTIONS (11)
  - DEPRESSION [None]
  - FEELING ABNORMAL [None]
  - HEADACHE [None]
  - HYPOGLYCAEMIA [None]
  - INSOMNIA [None]
  - MOOD SWINGS [None]
  - NEPHROLITHIASIS [None]
  - PERIODONTAL DISEASE [None]
  - RESTLESS LEGS SYNDROME [None]
  - UTERINE LEIOMYOMA [None]
  - WEIGHT INCREASED [None]
